FAERS Safety Report 18550011 (Version 4)
Quarter: 2021Q1

REPORT INFORMATION
  Report Type: Report from Study
  Country: IL (occurrence: IL)
  Receive Date: 20201126
  Receipt Date: 20210119
  Transmission Date: 20210419
  Serious: Yes (Other)
  Sender: FDA-Public Use
  Company Number: NVSC2020IL312021

PATIENT
  Sex: Female

DRUGS (1)
  1. KISQALI [Suspect]
     Active Substance: RIBOCICLIB
     Indication: BREAST CANCER
     Dosage: 600 MG, QD
     Route: 048
     Dates: start: 20200820

REACTIONS (9)
  - Pigmentation disorder [Not Recovered/Not Resolved]
  - Pyrexia [Recovered/Resolved]
  - Pruritus [Not Recovered/Not Resolved]
  - Abdominal distension [Recovering/Resolving]
  - Alopecia [Not Recovered/Not Resolved]
  - COVID-19 [Recovered/Resolved]
  - Treatment failure [Not Recovered/Not Resolved]
  - Lymphadenopathy [Unknown]
  - Headache [Recovered/Resolved]
